FAERS Safety Report 8338624 (Version 3)
Quarter: 2012Q4

REPORT INFORMATION
  Report Type: 
  Country: US (occurrence: US)
  Receive Date: 20120117
  Receipt Date: 20120921
  Transmission Date: 20130627
  Serious: Yes (Other)
  Sender: FDA-Public Use
  Company Number: US-PFIZER INC-2012011086

PATIENT
  Age: 44 Year
  Sex: Female
  Weight: 90.25 kg

DRUGS (11)
  1. ZOLOFT [Suspect]
     Indication: DEPRESSION
     Dosage: 100 mg, 2x/day
     Route: 048
     Dates: start: 1999, end: 1999
  2. ZOLOFT [Suspect]
     Indication: BIPOLAR I DISORDER
     Dosage: 100 mg, 3x/day
     Route: 048
     Dates: start: 1999
  3. ZOLOFT [Suspect]
     Indication: BIPOLAR DISORDER
     Dosage: 100 mg, UNK
     Route: 048
     Dates: end: 200212
  4. MULTIVITAMINS [Concomitant]
     Dosage: UNK
  5. CYMBALTA [Concomitant]
     Dosage: UNK
  6. SEROQUEL [Concomitant]
     Indication: SLEEP DISORDER
     Dosage: 300 mg, 1x/day
  7. LISINOPRIL [Concomitant]
     Indication: HYPERTENSION
     Dosage: UNK
  8. ACTOS [Concomitant]
     Indication: TYPE 2 DIABETES MELLITUS
     Dosage: 15 mg, UNK
  9. HUMULIN 70/30 [Concomitant]
     Indication: TYPE 2 DIABETES MELLITUS
     Dosage: UNK, 2x/day
  10. GLYBURIDE [Concomitant]
     Indication: TYPE 2 DIABETES MELLITUS
     Dosage: 60 mg, UNK
  11. TRAZODONE [Concomitant]
     Indication: SLEEP DISORDER
     Dosage: 100 mg, UNK

REACTIONS (21)
  - Sickle cell anaemia [Unknown]
  - Leukaemia [Unknown]
  - Vaginal neoplasm [Unknown]
  - Aneurysm [Unknown]
  - Hallucination [Unknown]
  - Psychotic disorder [Unknown]
  - Haemorrhage in pregnancy [Unknown]
  - Muscle spasms [Unknown]
  - Trismus [Unknown]
  - Dysgeusia [Unknown]
  - Vision blurred [Unknown]
  - Renal disorder [Unknown]
  - Bone disorder [Unknown]
  - Migraine [Unknown]
  - Constipation [Unknown]
  - Chills [Unknown]
  - Night sweats [Unknown]
  - Cardiac disorder [Unknown]
  - Malaise [Unknown]
  - Dizziness [Unknown]
  - Nausea [Unknown]
